FAERS Safety Report 6390107-4 (Version None)
Quarter: 2009Q4

REPORT INFORMATION
  Report Type: 
  Country: None (occurrence: None)
  Receive Date: 20091006
  Receipt Date: 20090918
  Transmission Date: 20100525
  Serious: No
  Sender: FDA-Public Use
  Company Number: JP-JNJFOC-20080502412

PATIENT
  Sex: Male

DRUGS (2)
  1. DUROTEP [Suspect]
     Indication: CANCER PAIN
     Route: 062
  2. VELCADE [Interacting]
     Indication: MULTIPLE MYELOMA
     Route: 042

REACTIONS (3)
  - DRUG INTERACTION [None]
  - SOMNOLENCE [None]
  - WRONG TECHNIQUE IN DRUG USAGE PROCESS [None]
